FAERS Safety Report 16831175 (Version 1)
Quarter: 2019Q3

REPORT INFORMATION
  Report Type: Spontaneous
  Country: BR (occurrence: BR)
  Receive Date: 20190920
  Receipt Date: 20190920
  Transmission Date: 20191005
  Serious: Yes (Other)
  Sender: FDA-Public Use
  Company Number: BR-009507513-1909BRA004723

PATIENT
  Sex: Female
  Weight: 62 kg

DRUGS (4)
  1. NUVARING [Suspect]
     Active Substance: ETHINYL ESTRADIOL\ETONOGESTREL
     Dosage: UNK, USE FOR 21 DAYS AND PAUSE FOR 7 DAYS
     Dates: start: 2014
  2. NUVARING [Suspect]
     Active Substance: ETHINYL ESTRADIOL\ETONOGESTREL
     Indication: CONTRACEPTION
     Dosage: UNK, USE FOR 21 DAYS AND PAUSE FOR 7 DAYS
     Dates: start: 2008
  3. NUVARING [Suspect]
     Active Substance: ETHINYL ESTRADIOL\ETONOGESTREL
     Dosage: UNK
     Dates: start: 20190909
  4. MIRENA [Suspect]
     Active Substance: LEVONORGESTREL
     Indication: CONTRACEPTION
     Dosage: UNK, DURATION: 2.5 YEARS
     Dates: end: 20190909

REACTIONS (9)
  - Hormone level abnormal [Unknown]
  - Vaginal haemorrhage [Unknown]
  - Intentional product misuse [Unknown]
  - Ovarian cyst [Recovered/Resolved]
  - Endometriosis [Unknown]
  - Anxiety [Unknown]
  - Depression [Unknown]
  - Pain [Unknown]
  - Muscle spasms [Unknown]

NARRATIVE: CASE EVENT DATE: 2015
